FAERS Safety Report 6406838-3 (Version None)
Quarter: 2009Q4

REPORT INFORMATION
  Report Type: 
  Country: None (occurrence: None)
  Receive Date: 20091020
  Receipt Date: 20091007
  Transmission Date: 20100525
  Serious: Yes (Other)
  Sender: FDA-Public Use
  Company Number: BR-RANBAXY-2009R5-28633

PATIENT

DRUGS (2)
  1. CECNOIN [Suspect]
     Indication: ACNE
     Dosage: 20 MG, BID
     Route: 048
     Dates: start: 20090813, end: 20091007
  2. HEXOMEDINE SPRAY [Concomitant]
     Indication: DRUG USE FOR UNKNOWN INDICATION

REACTIONS (5)
  - DRY SKIN [None]
  - DRY THROAT [None]
  - DYSPHONIA [None]
  - PHARYNGEAL OEDEMA [None]
  - RHINITIS [None]
